FAERS Safety Report 6595479-3 (Version None)
Quarter: 2010Q1

REPORT INFORMATION
  Report Type: 
  Country: None (occurrence: None)
  Receive Date: 20100222
  Receipt Date: 20100222
  Transmission Date: 20100710
  Serious: Yes (Hospitalization)
  Sender: FDA-Public Use
  Company Number: None

PATIENT
  Age: 55 Year
  Sex: Male
  Weight: 100.7 kg

DRUGS (1)
  1. IBUPROFEN [Suspect]
     Indication: PAIN
     Dosage: 600 MG QID PO
     Route: 048
     Dates: start: 20100118, end: 20100217

REACTIONS (5)
  - DIARRHOEA [None]
  - DUODENAL ULCER [None]
  - GASTRITIS [None]
  - HYPERPHAGIA [None]
  - HYPOPHAGIA [None]
